FAERS Safety Report 7929020-7 (Version None)
Quarter: 2011Q4

REPORT INFORMATION
  Report Type: 
  Country: None (occurrence: None)
  Receive Date: 20111118
  Receipt Date: 20111107
  Transmission Date: 20120403
  Serious: Yes (Hospitalization)
  Sender: FDA-Public Use
  Company Number: US-ROCHE-1013474

PATIENT
  Sex: Female

DRUGS (5)
  1. CYCLOPHOSPHAMIDE [Suspect]
     Indication: BREAST CANCER
     Dates: start: 20050208
  2. HERCEPTIN [Suspect]
  3. HERCEPTIN [Suspect]
     Indication: BREAST CANCER
     Dosage: LOADING DOSE
     Dates: start: 20050208
  4. DOXORUBICIN HCL [Suspect]
     Indication: BREAST CANCER
     Dates: start: 20050208
  5. PACLITAXEL [Suspect]
     Indication: BREAST CANCER
     Dates: start: 20050208

REACTIONS (1)
  - AMNESIA [None]
